FAERS Safety Report 17227830 (Version 1)
Quarter: 2020Q1

REPORT INFORMATION
  Report Type: Spontaneous
  Country: FR (occurrence: FR)
  Receive Date: 20200103
  Receipt Date: 20200103
  Transmission Date: 20200409
  Serious: Yes (Hospitalization, Other)
  Sender: FDA-Public Use
  Company Number: FR-AUROBINDO-AUR-APL-2019-109311

PATIENT
  Age: 25 Year

DRUGS (3)
  1. LAMALINE (ATROPA BELLADONNA EXTRACT\CAFFEINE\PAPAVER SOMNIFERUM TINCTURE\PARACETAMOL) [Suspect]
     Active Substance: ACETAMINOPHEN\BELLADONNA LEAF\CAFFEINE\OPIUM
     Indication: PRODUCT USED FOR UNKNOWN INDICATION
     Dosage: NON RENSEIGN?E
     Route: 048
     Dates: start: 20181219, end: 20181219
  2. ALPRAZOLAM. [Suspect]
     Active Substance: ALPRAZOLAM
     Indication: PRODUCT USED FOR UNKNOWN INDICATION
     Dosage: 2 MILLIGRAM, TOTAL
     Route: 048
     Dates: start: 20190623, end: 20190623
  3. MIANSERIN [Suspect]
     Active Substance: MIANSERIN
     Indication: PRODUCT USED FOR UNKNOWN INDICATION
     Dosage: 80 MILLIGRAM, TOTAL
     Route: 048
     Dates: start: 20190623, end: 20190623

REACTIONS (2)
  - Intentional product misuse [Recovered/Resolved]
  - Poisoning deliberate [Recovered/Resolved]

NARRATIVE: CASE EVENT DATE: 20181219
